FAERS Safety Report 15402583 (Version 1)
Quarter: 2018Q3

REPORT INFORMATION
  Report Type: Spontaneous
  Country: US (occurrence: US)
  Receive Date: 20180917
  Receipt Date: 20180917
  Transmission Date: 20181010
  Serious: Yes (Life-Threatening)
  Sender: FDA-Public Use
  Company Number: None

PATIENT
  Age: 25 Year
  Sex: Female
  Weight: 106.65 kg

DRUGS (12)
  1. NATURE?THROID [Suspect]
     Active Substance: THYROID, PORCINE
     Indication: ASTHENIA
     Dosage: ?          QUANTITY:90 TABLET(S);?
     Route: 048
     Dates: start: 20180714, end: 20180914
  2. ZYRTEC [Concomitant]
     Active Substance: CETIRIZINE HYDROCHLORIDE
  3. APTIOM [Concomitant]
     Active Substance: ESLICARBAZEPINE ACETATE
  4. EFFEXOR [Concomitant]
     Active Substance: VENLAFAXINE HYDROCHLORIDE
  5. NATURE?THROID [Suspect]
     Active Substance: THYROID, PORCINE
     Indication: TRI-IODOTHYRONINE DECREASED
     Dosage: ?          QUANTITY:90 TABLET(S);?
     Route: 048
     Dates: start: 20180714, end: 20180914
  6. NATURE?THROID [Suspect]
     Active Substance: THYROID, PORCINE
     Indication: OVERWEIGHT
     Dosage: ?          QUANTITY:90 TABLET(S);?
     Route: 048
     Dates: start: 20180714, end: 20180914
  7. ONFI [Concomitant]
     Active Substance: CLOBAZAM
  8. NATURE?THROID [Suspect]
     Active Substance: THYROID, PORCINE
     Indication: THYROXINE DECREASED
     Dosage: ?          QUANTITY:90 TABLET(S);?
     Route: 048
     Dates: start: 20180714, end: 20180914
  9. FOLIC ACID. [Concomitant]
     Active Substance: FOLIC ACID
  10. MELATONIN [Concomitant]
     Active Substance: MELATONIN
  11. LAMICTAL [Concomitant]
     Active Substance: LAMOTRIGINE
  12. VNS (VAGUS NERVE STIMULATOR IMPLANT) [Concomitant]

REACTIONS (14)
  - Drug ineffective [None]
  - Peripheral swelling [None]
  - Hyperaesthesia [None]
  - Urticaria [None]
  - Rash [None]
  - Oropharyngeal pain [None]
  - Nausea [None]
  - Dizziness [None]
  - Throat tightness [None]
  - Drug hypersensitivity [None]
  - Pruritus [None]
  - Papule [None]
  - Lip swelling [None]
  - Oral discomfort [None]

NARRATIVE: CASE EVENT DATE: 20180914
